FAERS Safety Report 5488217-9 (Version None)
Quarter: 2007Q3

REPORT INFORMATION
  Report Type: 
  Country: None (occurrence: None)
  Receive Date: 20070926
  Receipt Date: 20070725
  Transmission Date: 20080115
  Serious: Yes (Other)
  Sender: FDA-Public Use
  Company Number: HQWYE233926JUL07

PATIENT
  Sex: Male

DRUGS (1)
  1. TORISEL [Suspect]
     Dosage: ADMINISTERED OVER 60 MINUTES, INTRAVENOUS
     Route: 042
     Dates: start: 20070701, end: 20070701

REACTIONS (1)
  - CHEST DISCOMFORT [None]
